FAERS Safety Report 8078258-X (Version None)
Quarter: 2012Q1

REPORT INFORMATION
  Report Type: 
  Country: None (occurrence: None)
  Receive Date: 20120123
  Receipt Date: 20120110
  Transmission Date: 20120608
  Serious: Yes (Hospitalization)
  Sender: FDA-Public Use
  Company Number: DSA_48875_2012

PATIENT
  Age: 28 Year
  Sex: Female

DRUGS (1)
  1. BUPROPION HYDROCHLORIDE [Suspect]
     Indication: SELF-MEDICATION
     Dosage: (MORE THAN 10 TABLETS AT ONE TIME, NOT THE PRESCRIBED AMOUNT)
     Dates: start: 20111222, end: 20111222

REACTIONS (5)
  - AGITATION [None]
  - INCORRECT DOSE ADMINISTERED [None]
  - SOMNOLENCE [None]
  - SELF-MEDICATION [None]
  - DEPRESSED LEVEL OF CONSCIOUSNESS [None]
